FAERS Safety Report 22225198 (Version 1)
Quarter: 2023Q2

REPORT INFORMATION
  Report Type: Report from Study
  Country: US (occurrence: US)
  Receive Date: 20230418
  Receipt Date: 20230418
  Transmission Date: 20230721
  Serious: No
  Sender: FDA-Public Use
  Company Number: US-ABBVIE-4721630

PATIENT
  Age: 40 Year
  Sex: Male

DRUGS (3)
  1. HUMIRA [Suspect]
     Active Substance: ADALIMUMAB
     Indication: Psoriatic arthropathy
     Dosage: FORM STRENGTH: 40 MG ?CITRATE FREE
     Route: 058
     Dates: start: 20221202
  2. HUMIRA [Suspect]
     Active Substance: ADALIMUMAB
     Dosage: FORM STRENGTH: 40 MG ?CITRATE FREE
     Route: 058
     Dates: start: 20230102
  3. WEGOVY [Concomitant]
     Active Substance: SEMAGLUTIDE
     Indication: Weight control
     Dates: start: 20230402

REACTIONS (3)
  - Psoriasis [Unknown]
  - Arthralgia [Unknown]
  - Groin pain [Unknown]

NARRATIVE: CASE EVENT DATE: 20221207
